FAERS Safety Report 8936454 (Version 2)
Quarter: 2012Q4

REPORT INFORMATION
  Report Type: Report from Study
  Country: NO (occurrence: NO)
  Receive Date: 20121130
  Receipt Date: 20121204
  Transmission Date: 20130627
  Serious: Yes (Hospitalization)
  Sender: FDA-Public Use
  Company Number: NO-SANOFI-AVENTIS-2012SA086653

PATIENT
  Age: 75 Year
  Sex: Male
  Weight: 77 kg

DRUGS (16)
  1. TAXOTERE [Suspect]
     Indication: NON-SMALL CELL LUNG CANCER STAGE IV
     Route: 041
     Dates: start: 20121026, end: 20121026
  2. BLINDED THERAPY [Suspect]
     Indication: NON-SMALL CELL LUNG CANCER STAGE IV
     Route: 041
     Dates: start: 20121026, end: 20121026
  3. CALCIUM PANTOTHENATE/NICOTINAMIDE/RETINOL ACETATE [Concomitant]
     Indication: PROPHYLAXIS
  4. SOBRIL [Concomitant]
     Indication: DISCOMFORT
  5. ATORVASTATIN CALCIUM [Concomitant]
  6. FURIX [Concomitant]
     Indication: DIURETIC THERAPY
  7. TRIATEC [Concomitant]
     Indication: HYPERTENSION
  8. MONOKET [Concomitant]
     Indication: HYPERTENSION
  9. SELO-ZOK [Concomitant]
     Indication: HYPERTENSION
  10. ALBYL-E [Concomitant]
     Indication: ANTICOAGULANT THERAPY
  11. LEVAXIN [Concomitant]
     Indication: HYPOTHYROIDISM
  12. PARACET [Concomitant]
     Indication: PAIN
  13. FRAGMIN [Concomitant]
  14. FENTANYL [Concomitant]
     Indication: PAIN
  15. MIRTAZAPINE [Concomitant]
     Indication: DEPRESSION
  16. KALEORID [Concomitant]
     Indication: PROPHYLAXIS

REACTIONS (2)
  - General physical health deterioration [Recovered/Resolved]
  - Dehydration [Recovered/Resolved]
